FAERS Safety Report 19921360 (Version 16)
Quarter: 2025Q4

REPORT INFORMATION
  Report Type: Spontaneous
  Country: CA (occurrence: CA)
  Receive Date: 20211005
  Receipt Date: 20251209
  Transmission Date: 20260117
  Serious: Yes (Hospitalization, Other)
  Sender: MYLAN
  Company Number: CA-PFIZER INC-2021733163

PATIENT
  Age: 75 Year
  Sex: Female

DRUGS (40)
  1. REVATIO [Suspect]
     Active Substance: SILDENAFIL CITRATE
     Indication: Pulmonary arterial hypertension
     Dosage: 20 MILLIGRAM, TID (THREE TIMES A DAY)
     Dates: start: 20210104
  2. REVATIO [Suspect]
     Active Substance: SILDENAFIL CITRATE
     Dosage: 20 MILLIGRAM, TID (3 EVERY 1 DAYS)
  3. ATENOLOL [Concomitant]
     Active Substance: ATENOLOL
     Dosage: UNK
  4. ASPIRIN [Concomitant]
     Active Substance: ASPIRIN
     Indication: Product used for unknown indication
     Dosage: UNK
  5. BACLOFEN [Concomitant]
     Active Substance: BACLOFEN
     Dosage: UNK
  6. BREO ELLIPTA [Concomitant]
     Active Substance: FLUTICASONE FUROATE\VILANTEROL TRIFENATATE
     Dosage: UNK
  7. CALCIUM [Concomitant]
     Active Substance: CALCIUM
     Dosage: UNK
  8. VITAMINS [Concomitant]
     Active Substance: VITAMINS
     Dosage: 1 DOSAGE FORM, QD (DAILY)
     Dates: start: 20250815
  9. SPIRONOLACTONE [Concomitant]
     Active Substance: SPIRONOLACTONE
     Dosage: UNK
  10. SPIRONOLACTONE [Concomitant]
     Active Substance: SPIRONOLACTONE
     Dosage: UNK
  11. FUROSEMIDE [Concomitant]
     Active Substance: FUROSEMIDE
     Dosage: UNK
  12. BREO ELLIPTA [Concomitant]
     Active Substance: FLUTICASONE FUROATE\VILANTEROL TRIFENATATE
     Dosage: UNK
  13. SPIRIVA [Concomitant]
     Active Substance: TIOTROPIUM BROMIDE MONOHYDRATE
     Dosage: UNK
  14. VENTOLIN [Concomitant]
     Active Substance: ALBUTEROL SULFATE
     Dosage: UNK
  15. OXYGEN [Concomitant]
     Active Substance: OXYGEN
     Dosage: UNK
  16. MINERALS\VITAMINS [Concomitant]
     Active Substance: MINERALS\VITAMINS
     Dosage: UNK
  17. EXEMESTANE [Concomitant]
     Active Substance: EXEMESTANE
     Dosage: UNK
  18. GLICLAZIDE [Concomitant]
     Active Substance: GLICLAZIDE
     Dosage: UNK
  19. LANTUS [Concomitant]
     Active Substance: INSULIN GLARGINE
     Dosage: UNK
  20. LATANOPROST [Concomitant]
     Active Substance: LATANOPROST
     Indication: Product used for unknown indication
     Dosage: UNK
  21. LEVOTHYROXINE [Concomitant]
     Active Substance: LEVOTHYROXINE
     Dosage: UNK
  22. LIPITOR [Concomitant]
     Active Substance: ATORVASTATIN CALCIUM
     Dosage: UNK
  23. LISINOPRIL [Concomitant]
     Active Substance: LISINOPRIL
     Dosage: UNK
  24. METFORMIN [Concomitant]
     Active Substance: METFORMIN HYDROCHLORIDE
     Dosage: UNK
  25. OPSUMIT [Concomitant]
     Active Substance: MACITENTAN
     Dosage: 10 MILLIGRAM, QD (ONCE DAILY)
     Dates: start: 20250815
  26. UPTRAVI [Concomitant]
     Active Substance: SELEXIPAG
     Dosage: 400 MICROGRAM, BID (400 MCG, 2X/DAY)
  27. UPTRAVI [Concomitant]
     Active Substance: SELEXIPAG
     Dosage: 1000, BID
  28. UPTRAVI [Concomitant]
     Active Substance: SELEXIPAG
     Dosage: UNK, BID (2 EVERY 1 DAYS)
  29. VITAMIN D [Concomitant]
     Active Substance: VITAMIN D NOS
     Dosage: UNK
  30. TYLENOL WITH CODEINE [Concomitant]
     Active Substance: ACETAMINOPHEN\CODEINE PHOSPHATE
     Dosage: UNK
  31. ASPIRIN [Concomitant]
     Active Substance: ASPIRIN
     Dosage: UNK
  32. ATENOLOL [Concomitant]
     Active Substance: ATENOLOL
     Dosage: UNK
  33. EXEMESTANE [Concomitant]
     Active Substance: EXEMESTANE
     Dosage: UNK
  34. GLICLAZIDE [Concomitant]
     Active Substance: GLICLAZIDE
     Dosage: UNK
  35. LANTUS [Concomitant]
     Active Substance: INSULIN GLARGINE
     Dosage: UNK
  36. LATANOPROST [Concomitant]
     Active Substance: LATANOPROST
     Dosage: UNK
  37. LEVOTHYROXINE SODIUM [Concomitant]
     Active Substance: LEVOTHYROXINE SODIUM
     Dosage: UNK
  38. LISINOPRIL [Concomitant]
     Active Substance: LISINOPRIL
     Dosage: UNK
  39. OPSUMIT [Concomitant]
     Active Substance: MACITENTAN
     Dosage: UNK
  40. UPTRAVI [Concomitant]
     Active Substance: SELEXIPAG
     Dosage: 600 MICROGRAM, BID (1 TABLET, 1 EVERY 12 HOURS)
     Dates: start: 20250815

REACTIONS (29)
  - Hospitalisation [Not Recovered/Not Resolved]
  - Sensitivity to weather change [Not Recovered/Not Resolved]
  - Oxygen saturation decreased [Not Recovered/Not Resolved]
  - Renal impairment [Not Recovered/Not Resolved]
  - Diarrhoea [Not Recovered/Not Resolved]
  - Pain [Not Recovered/Not Resolved]
  - Arthralgia [Not Recovered/Not Resolved]
  - Infection [Unknown]
  - Hypoaesthesia [Not Recovered/Not Resolved]
  - Musculoskeletal stiffness [Not Recovered/Not Resolved]
  - Joint stiffness [Not Recovered/Not Resolved]
  - Salivary hypersecretion [Not Recovered/Not Resolved]
  - Productive cough [Not Recovered/Not Resolved]
  - Pain in jaw [Not Recovered/Not Resolved]
  - Malaise [Not Recovered/Not Resolved]
  - Dysphagia [Not Recovered/Not Resolved]
  - Temperature intolerance [Unknown]
  - Headache [Not Recovered/Not Resolved]
  - Myalgia [Not Recovered/Not Resolved]
  - Pain in extremity [Not Recovered/Not Resolved]
  - Poor quality sleep [Not Recovered/Not Resolved]
  - Nausea [Not Recovered/Not Resolved]
  - Nasal dryness [Not Recovered/Not Resolved]
  - Dry mouth [Not Recovered/Not Resolved]
  - Gastrooesophageal reflux disease [Not Recovered/Not Resolved]
  - Flushing [Not Recovered/Not Resolved]
  - Erythema [Not Recovered/Not Resolved]
  - Pneumonia [Unknown]
  - Adverse event [Unknown]

NARRATIVE: CASE EVENT DATE: 20211209
